FAERS Safety Report 15617211 (Version 8)
Quarter: 2019Q4

REPORT INFORMATION
  Report Type: Spontaneous
  Country: US (occurrence: US)
  Receive Date: 20181114
  Receipt Date: 20191119
  Transmission Date: 20200122
  Serious: No
  Sender: FDA-Public Use
  Company Number: US-PFIZER INC-2018468456

PATIENT
  Age: 78 Year
  Sex: Female
  Weight: 110 kg

DRUGS (1)
  1. IBRANCE [Suspect]
     Active Substance: PALBOCICLIB
     Indication: BREAST CANCER FEMALE
     Dosage: 125 MG, CYCLIC (125 MG BY MOUTH, ONCE A DAY FOR 3 WEEKS, AND ONE WEEK OFF)
     Route: 048

REACTIONS (3)
  - Hypoacusis [Recovered/Resolved]
  - Product storage error [Unknown]
  - Poor quality product administered [Unknown]

NARRATIVE: CASE EVENT DATE: 20190716
